FAERS Safety Report 21925458 (Version 1)
Quarter: 2023Q1

REPORT INFORMATION
  Report Type: Spontaneous
  Country: US (occurrence: None)
  Receive Date: 20230127
  Receipt Date: 20230127
  Transmission Date: 20230417
  Serious: Yes (Hospitalization)
  Sender: FDA-Public Use
  Company Number: None

PATIENT
  Sex: Male

DRUGS (7)
  1. ADVATE [Suspect]
     Active Substance: ANTIHEMOPHILIC FACTOR, HUMAN RECOMBINANT
     Indication: Factor VIII deficiency
     Dosage: 3000 UNIT INTRAVENOUS??INFUSE 5805 UNITS (1 VIAL OF 2694 IU AND 3111 IU) INTRAVENOUSLY FOR BLEEDING
     Route: 042
  2. ADVATE [Suspect]
     Active Substance: ANTIHEMOPHILIC FACTOR, HUMAN RECOMBINANT
     Dosage: OTHER QUANTITY : 5805 UNITS;?FREQUENCY : AS DIRECTED;?
     Route: 042
  3. ADDERALL [Concomitant]
  4. AMLODIPINE [Concomitant]
  5. LISINOPRIL [Concomitant]
  6. METFORMIN [Concomitant]
  7. METOPROL TAR [Concomitant]

REACTIONS (1)
  - Haemorrhage [None]
